FAERS Safety Report 5144172-2 (Version None)
Quarter: 2006Q4

REPORT INFORMATION
  Report Type: 
  Country: None (occurrence: None)
  Receive Date: 20061106
  Receipt Date: 20060817
  Transmission Date: 20070319
  Serious: Yes (Other)
  Sender: FDA-Public Use
  Company Number: GB-ROCHE-460083

PATIENT
  Sex: Male
  Weight: 2.7 kg

DRUGS (5)
  1. INVIRASE [Suspect]
     Indication: DRUG USE FOR UNKNOWN INDICATION
     Dates: start: 20060411
  2. EPZICOM [Concomitant]
     Dosage: UNIT AND FORM REPORTED AS 'TABS OR CAPS'.
     Dates: end: 20051225
  3. VIRAMUNE [Concomitant]
     Dates: end: 20051225
  4. COMBIVIR [Concomitant]
     Dosage: FORM REPORTED AS 'TABS OR CAPS'.
     Dates: start: 20060411
  5. NORVIR [Concomitant]
     Dates: start: 20060411

REACTIONS (3)
  - DRUG EXPOSURE DURING PREGNANCY [None]
  - NO ADVERSE EFFECT [None]
  - NORMAL NEWBORN [None]
